FAERS Safety Report 4917500-8 (Version None)
Quarter: 2006Q1

REPORT INFORMATION
  Report Type: 
  Country: None (occurrence: None)
  Receive Date: 20060216
  Receipt Date: 20060216
  Transmission Date: 20060701
  Serious: No
  Sender: FDA-Public Use
  Company Number: None

PATIENT
  Sex: Male
  Weight: 121.8 kg

DRUGS (3)
  1. FLUOROURACIL [Suspect]
     Indication: COLON CANCER
     Dosage: 20664 MG
     Dates: end: 20060130
  2. LEUCOVORIN CALCIUM [Suspect]
     Dosage: 2952 MG
     Dates: end: 20060130
  3. ELOXATIN [Suspect]
     Dosage: 627 MG
     Dates: end: 20060130

REACTIONS (4)
  - ABDOMINAL DISCOMFORT [None]
  - BLOOD ALBUMIN DECREASED [None]
  - OEDEMA [None]
  - PROTEINURIA [None]
